FAERS Safety Report 10965560 (Version 6)
Quarter: 2016Q1

REPORT INFORMATION
  Report Type: Spontaneous
  Country: US (occurrence: US)
  Receive Date: 20150330
  Receipt Date: 20160129
  Transmission Date: 20160525
  Serious: Yes (Hospitalization, Other)
  Sender: FDA-Public Use
  Company Number: US-JNJFOC-20150318577

PATIENT
  Age: 34 Year
  Sex: Male
  Weight: 103.16 kg

DRUGS (15)
  1. INSULIN REGULAR [Concomitant]
     Active Substance: INSULIN NOS
     Dosage: 1 TO 50 UNITS
     Route: 050
     Dates: start: 20150318
  2. GLUCAGON HYDROCHLORIDE [Concomitant]
     Active Substance: GLUCAGON HYDROCHLORIDE
     Route: 050
     Dates: start: 20150320
  3. INVOKANA [Suspect]
     Active Substance: CANAGLIFLOZIN
     Indication: TYPE 1 DIABETES MELLITUS
     Route: 048
  4. INSULIN [Concomitant]
     Active Substance: INSULIN NOS
     Route: 058
     Dates: start: 1998
  5. INSULIN ASPART [Concomitant]
     Active Substance: INSULIN ASPART
     Dosage: 2 TO 12 UNITS
     Route: 058
     Dates: start: 20150321
  6. INSULIN REGULAR [Concomitant]
     Active Substance: INSULIN NOS
     Route: 050
     Dates: start: 20150320
  7. INVOKANA [Suspect]
     Active Substance: CANAGLIFLOZIN
     Indication: TYPE 1 DIABETES MELLITUS
     Route: 048
     Dates: start: 201403, end: 20150313
  8. LISINOPRIL. [Concomitant]
     Active Substance: LISINOPRIL
     Indication: HYPERTENSION
     Route: 061
  9. GLUCOSE [Concomitant]
     Active Substance: DEXTROSE
     Route: 048
     Dates: start: 20150320
  10. INVOKANA [Suspect]
     Active Substance: CANAGLIFLOZIN
     Indication: TYPE 1 DIABETES MELLITUS
     Route: 048
     Dates: start: 20150316, end: 20150318
  11. INSULIN GLARGINE [Concomitant]
     Active Substance: INSULIN GLARGINE
     Route: 058
     Dates: start: 20150320
  12. INSULIN ASPART [Concomitant]
     Active Substance: INSULIN ASPART
     Dosage: 1 TO 6 UNITS
     Route: 058
     Dates: start: 20150320
  13. HUMALOG [Concomitant]
     Active Substance: INSULIN LISPRO
     Dosage: INJECT INTO THE SKIN BEFORE MEALS, 100 UNIT ML
     Route: 058
     Dates: start: 20150313
  14. LIPITOR [Concomitant]
     Active Substance: ATORVASTATIN CALCIUM
     Indication: HYPERLIPIDAEMIA
     Route: 065
  15. HYDRODIURIL [Concomitant]
     Active Substance: HYDROCHLOROTHIAZIDE
     Indication: HYPERTENSION
     Route: 065

REACTIONS (7)
  - Diabetic ketoacidosis [Recovering/Resolving]
  - Oral candidiasis [Recovering/Resolving]
  - Product use issue [Unknown]
  - Dyspepsia [Recovering/Resolving]
  - Weight decreased [Unknown]
  - Gastroenteritis viral [Unknown]
  - Acute kidney injury [Unknown]

NARRATIVE: CASE EVENT DATE: 20150315
